FAERS Safety Report 6807283-9 (Version None)
Quarter: 2010Q2

REPORT INFORMATION
  Report Type: 
  Country: None (occurrence: None)
  Receive Date: 20100628
  Receipt Date: 20100628
  Transmission Date: 20101027
  Serious: Yes (Hospitalization)
  Sender: FDA-Public Use
  Company Number: None

PATIENT
  Sex: Female

DRUGS (6)
  1. FENTANYL-100 [Suspect]
     Indication: CANCER PAIN
     Dosage: 200 MCG UNKNOWN TRANSDERMAL - HOME MEDICATION
     Route: 062
  2. PREGABALIN [Concomitant]
  3. TRAZODONE [Concomitant]
  4. NORCO [Concomitant]
  5. DIPHENHYDRAMINE [Concomitant]
  6. FLUNISOLIDE [Concomitant]

REACTIONS (4)
  - DEPRESSED LEVEL OF CONSCIOUSNESS [None]
  - INCORRECT DOSE ADMINISTERED [None]
  - LETHARGY [None]
  - SOMNOLENCE [None]
